FAERS Safety Report 4570241-1 (Version None)
Quarter: 2005Q1

REPORT INFORMATION
  Report Type: 
  Country: None (occurrence: None)
  Receive Date: 20050127
  Receipt Date: 20050127
  Transmission Date: 20050727
  Serious: Yes (Other)
  Sender: FDA-Public Use
  Company Number: None

PATIENT
  Sex: Male

DRUGS (1)
  1. REGLAN [Suspect]
     Dosage: REGLAN
     Dates: start: 20050108, end: 20050109

REACTIONS (3)
  - FACIAL PAIN [None]
  - MUSCLE TWITCHING [None]
  - TONGUE OEDEMA [None]
